FAERS Safety Report 20765239 (Version 1)
Quarter: 2022Q2

REPORT INFORMATION
  Report Type: Spontaneous
  Country: CN (occurrence: CN)
  Receive Date: 20220428
  Receipt Date: 20220428
  Transmission Date: 20220721
  Serious: Yes (Hospitalization, Other)
  Sender: FDA-Public Use
  Company Number: CN-BAXTER-2022BAX009093

PATIENT
  Age: 55 Year
  Sex: Female
  Weight: 62 kg

DRUGS (6)
  1. CYCLOPHOSPHAMIDE [Suspect]
     Active Substance: CYCLOPHOSPHAMIDE
     Indication: Breast cancer female
     Dosage: PRIOR CYCLE
     Route: 041
  2. CYCLOPHOSPHAMIDE [Suspect]
     Active Substance: CYCLOPHOSPHAMIDE
     Dosage: CURRENT REGIMEN: CYCLOPHOSPHAMIDE FOR INJECTION 900 MG + 0.9% SODIUM CHLORIDE INJECTION 100ML, D1
     Route: 041
     Dates: start: 20220410, end: 20220410
  3. SODIUM CHLORIDE [Suspect]
     Active Substance: SODIUM CHLORIDE
     Indication: Medication dilution
     Dosage: CYCLOPHOSPHAMIDE FOR INJECTION 900 MG + 0.9% SODIUM CHLORIDE INJECTION 100ML
     Route: 041
     Dates: start: 20220410, end: 20220410
  4. SODIUM CHLORIDE [Suspect]
     Active Substance: SODIUM CHLORIDE
     Dosage: PACLITAXEL FOR INJECTION (ALBUMIN BOUND TYPE) 400 MG + 0.9% SODIUM CHLORIDE INJECTION 800ML
     Route: 041
     Dates: start: 20220410, end: 20220410
  5. PACLITAXEL [Suspect]
     Active Substance: PACLITAXEL
     Indication: Breast cancer female
     Dosage: PRIOR CYCLE
     Route: 041
  6. PACLITAXEL [Suspect]
     Active Substance: PACLITAXEL
     Dosage: CURRENT REGIMEN: PACLITAXEL FOR INJECTION 400 MG + 0.9% SODIUM CHLORIDE INJECTION 800ML
     Route: 041
     Dates: start: 20220410, end: 20220410

REACTIONS (2)
  - Myelosuppression [Unknown]
  - Granulocytopenia [Recovered/Resolved]

NARRATIVE: CASE EVENT DATE: 20220417
